FAERS Safety Report 5330560-8 (Version None)
Quarter: 2007Q2

REPORT INFORMATION
  Report Type: 
  Country: None (occurrence: None)
  Receive Date: 20070521
  Receipt Date: 20070511
  Transmission Date: 20071010
  Serious: Yes (Hospitalization)
  Sender: FDA-Public Use
  Company Number: JP-ELI_LILLY_AND_COMPANY-JP200704003739

PATIENT
  Age: 30 Year
  Sex: Female
  Weight: 28 kg

DRUGS (3)
  1. ZYPREXA FINE GRANULE 1% [Suspect]
     Indication: SCHIZOPHRENIA
     Route: 048
  2. ZYPREXA FINE GRANULE 1% [Suspect]
     Dosage: 6 MG, EACH EVENING
     Route: 048
     Dates: start: 20070406, end: 20070409
  3. GASTER [Concomitant]
     Route: 048

REACTIONS (3)
  - HYPOGLYCAEMIC UNCONSCIOUSNESS [None]
  - PLATELET COUNT DECREASED [None]
  - WHITE BLOOD CELL COUNT DECREASED [None]
